FAERS Safety Report 16120514 (Version 1)
Quarter: 2019Q1

REPORT INFORMATION
  Report Type: Spontaneous
  Country: US (occurrence: US)
  Receive Date: 20190326
  Receipt Date: 20190326
  Transmission Date: 20190418
  Serious: No
  Sender: FDA-Public Use
  Company Number: US-B.I. PHARMACEUTICALS,INC./RIDGEFIELD-2019-BI-012371

PATIENT
  Sex: Female

DRUGS (1)
  1. GLYXAMBI [Suspect]
     Active Substance: EMPAGLIFLOZIN\LINAGLIPTIN
     Indication: PRODUCT USED FOR UNKNOWN INDICATION
     Dosage: FORM STRENGTH: 10 MG/ 5 MG; FORMULATION: TABLET ?ACTION(S) TAKEN WITH PRODUCT: NOT REPORTED
     Route: 048

REACTIONS (2)
  - Upper limb fracture [Not Recovered/Not Resolved]
  - Fall [Recovered/Resolved]
